FAERS Safety Report 5076785-0 (Version None)
Quarter: 2006Q3

REPORT INFORMATION
  Report Type: 
  Country: None (occurrence: None)
  Receive Date: 20060725
  Receipt Date: 20060502
  Transmission Date: 20061208
  Serious: No
  Sender: FDA-Public Use
  Company Number: 200613226BWH

PATIENT
  Age: 66 Year
  Sex: Female

DRUGS (4)
  1. NEXAVAR [Suspect]
     Indication: RENAL CELL CARCINOMA STAGE UNSPECIFIED
     Dosage: 400 MG, BID, ORAL
     Route: 048
     Dates: start: 20060421
  2. ATENOLOL [Concomitant]
  3. LISINOPRIL W/HYDROCHLOROTHIAZIDE [Concomitant]
  4. ALBUTEROL [Concomitant]

REACTIONS (2)
  - PYREXIA [None]
  - RASH ERYTHEMATOUS [None]
